FAERS Safety Report 19870232 (Version 4)
Quarter: 2022Q1

REPORT INFORMATION
  Report Type: Report from Study
  Country: CA (occurrence: CA)
  Receive Date: 20210922
  Receipt Date: 20220314
  Transmission Date: 20220423
  Serious: Yes (Hospitalization, Other)
  Sender: FDA-Public Use
  Company Number: CA-OTSUKA-2021_032198

PATIENT
  Sex: Male

DRUGS (1)
  1. CEDAZURIDINE\DECITABINE [Suspect]
     Active Substance: CEDAZURIDINE\DECITABINE
     Indication: Myelodysplastic syndrome
     Dosage: (35 MG DECITABINE AND 100 MG CEDAZURIDINE); 5 PILLS/CYCLE
     Route: 065
     Dates: start: 20210816, end: 20220309

REACTIONS (4)
  - Transfusion [Unknown]
  - Infection [Unknown]
  - Therapy interrupted [Unknown]
  - Therapy cessation [Unknown]
